FAERS Safety Report 5339804-X (Version None)
Quarter: 2007Q2

REPORT INFORMATION
  Report Type: 
  Country: None (occurrence: None)
  Receive Date: 20070525
  Receipt Date: 20070514
  Transmission Date: 20071010
  Serious: Yes (Other)
  Sender: FDA-Public Use
  Company Number: 2007321026

PATIENT
  Age: 14 Month
  Sex: Female
  Weight: 11.7935 kg

DRUGS (3)
  1. BENADRYL [Suspect]
     Indication: HYPERSENSITIVITY
     Dosage: 1/2 TEASPOON ONCE, ORAL
     Route: 048
     Dates: start: 20070514, end: 20070514
  2. PREVACID [Concomitant]
  3. REGLAN [Concomitant]

REACTIONS (2)
  - HYPERSENSITIVITY [None]
  - OXYGEN SATURATION DECREASED [None]
